FAERS Safety Report 20305612 (Version 1)
Quarter: 2022Q1

REPORT INFORMATION
  Report Type: Spontaneous
  Country: US (occurrence: None)
  Receive Date: 20220106
  Receipt Date: 20220106
  Transmission Date: 20220423
  Serious: No
  Sender: FDA-Public Use
  Company Number: None

PATIENT
  Age: 30 Year
  Sex: Female
  Weight: 77.1 kg

DRUGS (11)
  1. BAMLANIVIMAB [Suspect]
     Active Substance: BAMLANIVIMAB
     Indication: COVID-19
     Dosage: FREQUENCY : ONCE;?
     Route: 042
     Dates: start: 20211229, end: 20211229
  2. ETESEVIMAB [Suspect]
     Active Substance: ETESEVIMAB
     Indication: COVID-19
     Dosage: FREQUENCY : ONCE;?
     Route: 042
     Dates: start: 20211229, end: 20211229
  3. BELUMOSUDIL [Concomitant]
     Active Substance: BELUMOSUDIL
  4. mycophenolate mofetil 500 mg po [Concomitant]
  5. posaconazole 300 mg po [Concomitant]
  6. ruxolitinib 10 mg tab [Concomitant]
  7. PREDNISONE [Concomitant]
     Active Substance: PREDNISONE
  8. fluoxetine 40 mg po [Concomitant]
  9. loperamide 2 mg po [Concomitant]
  10. eszopiclone 2 mg po [Concomitant]
  11. sulfamethoxazole-trimethoprim DS tab [Concomitant]

REACTIONS (6)
  - Chest discomfort [None]
  - Chest pain [None]
  - Nausea [None]
  - Flushing [None]
  - Dyspnoea [None]
  - Therapy cessation [None]

NARRATIVE: CASE EVENT DATE: 20211229
